FAERS Safety Report 6161524-2 (Version None)
Quarter: 2009Q2

REPORT INFORMATION
  Report Type: 
  Country: None (occurrence: None)
  Receive Date: 20090417
  Receipt Date: 20090417
  Transmission Date: 20091009
  Serious: Yes (Hospitalization)
  Sender: FDA-Public Use
  Company Number: None

PATIENT
  Sex: Female
  Weight: 78.6 kg

DRUGS (2)
  1. CISPLATIN [Suspect]
     Dosage: 137 MG
     Dates: end: 20090326
  2. TAXOTERE [Suspect]
     Dosage: 137 MG
     Dates: end: 20090326

REACTIONS (2)
  - DYSPNOEA [None]
  - PULMONARY EMBOLISM [None]
